FAERS Safety Report 25896705 (Version 1)
Quarter: 2025Q4

REPORT INFORMATION
  Report Type: Spontaneous
  Country: MX (occurrence: MX)
  Receive Date: 20251008
  Receipt Date: 20251008
  Transmission Date: 20260117
  Serious: Yes (Other)
  Sender: PFIZER
  Company Number: MX-PFIZER INC-PV202500119001

PATIENT
  Age: 64 Year
  Sex: Male

DRUGS (2)
  1. LORLATINIB [Suspect]
     Active Substance: LORLATINIB
     Indication: ALK gene rearrangement positive
     Dosage: 100 MG, EVERY 24 HOURS
     Route: 048
     Dates: start: 202409, end: 202506
  2. LORLATINIB [Suspect]
     Active Substance: LORLATINIB
     Indication: Lung adenocarcinoma stage IV
     Dosage: 75 MG, DAILY
     Dates: start: 202506

REACTIONS (10)
  - Lung adenocarcinoma stage IV [Unknown]
  - Malignant neoplasm oligoprogression [Unknown]
  - Malignant neoplasm oligoprogression [Unknown]
  - Hyperglycaemia [Unknown]
  - Hyperlipidaemia [Unknown]
  - Diarrhoea [Recovered/Resolved]
  - Neurogenic bladder [Unknown]
  - Condition aggravated [Unknown]
  - Rash [Unknown]
  - Peripheral sensory neuropathy [Unknown]

NARRATIVE: CASE EVENT DATE: 20240101
